FAERS Safety Report 17142095 (Version 1)
Quarter: 2019Q4

REPORT INFORMATION
  Report Type: Spontaneous
  Country: CN (occurrence: CN)
  Receive Date: 20191211
  Receipt Date: 20191211
  Transmission Date: 20200122
  Serious: Yes (Hospitalization, Other)
  Sender: FDA-Public Use
  Company Number: CN-JNJFOC-20191145957

PATIENT
  Age: 49 Year
  Sex: Female
  Weight: 78 kg

DRUGS (6)
  1. RISPERDAL [Suspect]
     Active Substance: RISPERIDONE
     Route: 048
  2. RISPERDAL [Suspect]
     Active Substance: RISPERIDONE
     Dosage: 2 MG  IN THE MORNING AND 1 MG IN THE EVENING
     Route: 048
     Dates: start: 20191123, end: 20191124
  3. RISPERDAL [Suspect]
     Active Substance: RISPERIDONE
     Route: 048
     Dates: start: 2015
  4. RISPERDAL [Suspect]
     Active Substance: RISPERIDONE
     Indication: SCHIZOPHRENIA
     Route: 048
  5. RISPERDAL [Suspect]
     Active Substance: RISPERIDONE
     Dosage: 4 MG IN THE MORNING AND 3 MG IN THE EVENING
     Route: 048
     Dates: start: 20191121, end: 20191122
  6. RISPERDAL [Suspect]
     Active Substance: RISPERIDONE
     Dosage: 3 MG  IN THE MORNING AND 2 MG IN THE EVENING
     Route: 048
     Dates: start: 20191127

REACTIONS (4)
  - Hospitalisation [Unknown]
  - Treatment noncompliance [Unknown]
  - Schizophrenia [Unknown]
  - Blood prolactin increased [Not Recovered/Not Resolved]

NARRATIVE: CASE EVENT DATE: 2019
